FAERS Safety Report 15043606 (Version 1)
Quarter: 2018Q2

REPORT INFORMATION
  Report Type: Spontaneous
  Country: DE (occurrence: DE)
  Receive Date: 20180621
  Receipt Date: 20180621
  Transmission Date: 20180711
  Serious: Yes (Other)
  Sender: FDA-Public Use
  Company Number: DE-PFIZER INC-2018250315

PATIENT
  Age: 50 Year
  Sex: Female
  Weight: 60 kg

DRUGS (1)
  1. PREGABALIN. [Suspect]
     Active Substance: PREGABALIN
     Dosage: UNK
     Route: 048

REACTIONS (8)
  - Seizure [Unknown]
  - Tremor [Unknown]
  - Fluid retention [Unknown]
  - Chest discomfort [Unknown]
  - Urine output decreased [Unknown]
  - Ataxia [Unknown]
  - Respiratory distress [Unknown]
  - Nervous system disorder [Unknown]
